FAERS Safety Report 7736426-8 (Version None)
Quarter: 2011Q3

REPORT INFORMATION
  Report Type: 
  Country: None (occurrence: None)
  Receive Date: 20110908
  Receipt Date: 20110830
  Transmission Date: 20111222
  Serious: Yes (Hospitalization)
  Sender: FDA-Public Use
  Company Number: FR-SANOFI-AVENTIS-2011SA048255

PATIENT
  Age: 49 Year
  Sex: Male

DRUGS (22)
  1. PHLOROGLUCINOL [Suspect]
     Route: 065
     Dates: start: 20110627, end: 20110629
  2. ZOLPIDEM [Suspect]
     Route: 048
     Dates: start: 20110628, end: 20110701
  3. ACETAMINOPHEN [Suspect]
     Route: 065
     Dates: end: 20110621
  4. VITABACT [Suspect]
     Dosage: 1 GOUT IN EACH EYE
     Route: 047
     Dates: start: 20110627, end: 20110710
  5. OLMESARTAN MEDOXOMIL [Suspect]
     Route: 048
     Dates: start: 20110625, end: 20110712
  6. IMOVANE [Concomitant]
     Route: 048
     Dates: start: 20110702, end: 20110705
  7. PANTOPRAZOLE [Suspect]
     Route: 042
     Dates: start: 20110623, end: 20110624
  8. LANSOPRAZOLE [Suspect]
     Route: 065
     Dates: end: 20110621
  9. SULFASALAZINE [Suspect]
     Indication: BURSITIS
     Route: 065
     Dates: start: 20110301, end: 20110601
  10. CEFTRIAXONE [Suspect]
     Route: 042
     Dates: start: 20110626, end: 20110630
  11. ESOMEPRAZOLE SODIUM [Suspect]
     Route: 048
     Dates: start: 20110629, end: 20110702
  12. CETIRIZINE HCL [Concomitant]
     Route: 048
     Dates: start: 20110702, end: 20110705
  13. LOVENOX [Suspect]
     Route: 058
     Dates: start: 20110624, end: 20110630
  14. ASPIRIN [Suspect]
     Route: 048
     Dates: start: 20110625, end: 20110705
  15. ASPIRIN [Suspect]
     Route: 048
     Dates: end: 20110621
  16. PANTOPRAZOLE [Suspect]
     Route: 042
     Dates: start: 20110625, end: 20110628
  17. BISOPROLOL FUMARATE [Suspect]
     Route: 048
     Dates: start: 20110625, end: 20110712
  18. BISOPROLOL FUMARATE [Suspect]
     Route: 048
     Dates: end: 20110621
  19. KETOPROFEN [Suspect]
     Route: 065
     Dates: end: 20110621
  20. OLMESARTAN MEDOXOMIL [Suspect]
     Route: 065
     Dates: end: 20110621
  21. TRAMADOL HCL [Suspect]
     Route: 065
     Dates: start: 20110623, end: 20110624
  22. VITAMIN B1 AND B6 [Suspect]
     Route: 048
     Dates: start: 20110628, end: 20110712

REACTIONS (5)
  - NEUTROPENIA [None]
  - DRUG RASH WITH EOSINOPHILIA AND SYSTEMIC SYMPTOMS [None]
  - AGRANULOCYTOSIS [None]
  - LIVER INJURY [None]
  - RASH [None]
